FAERS Safety Report 16881225 (Version 4)
Quarter: 2019Q4

REPORT INFORMATION
  Report Type: Spontaneous
  Country: US (occurrence: US)
  Receive Date: 20191003
  Receipt Date: 20191031
  Transmission Date: 20200122
  Serious: Yes (Other)
  Sender: FDA-Public Use
  Company Number: US-TEVA-2019-US-1114902

PATIENT
  Sex: Male

DRUGS (4)
  1. CEPHALON MODAFINIL [Suspect]
     Active Substance: MODAFINIL
     Indication: HYPERSOMNIA
  2. CEPHALON MODAFINIL [Suspect]
     Active Substance: MODAFINIL
     Indication: ATTENTION DEFICIT/HYPERACTIVITY DISORDER
     Dosage: TOOK 200 MG AT 9 AM, AND 100 MG TABLET AT 1 PM
     Route: 065
  3. CEPHALON MODAFINIL [Suspect]
     Active Substance: MODAFINIL
     Indication: DEPRESSION
  4. NUVIGIL [Suspect]
     Active Substance: ARMODAFINIL
     Route: 065

REACTIONS (30)
  - General physical health deterioration [Unknown]
  - Hypoglycaemia [Unknown]
  - Product substitution issue [Unknown]
  - Loss of consciousness [Unknown]
  - Near death experience [Unknown]
  - Malaise [Unknown]
  - Somnambulism [Unknown]
  - Walking disability [Unknown]
  - Drug ineffective [Unknown]
  - Feeling abnormal [Unknown]
  - Metabolic disorder [Unknown]
  - Aortic disorder [Unknown]
  - Sleep apnoea syndrome [Unknown]
  - Product tampering [Unknown]
  - Sleep deficit [Unknown]
  - Loss of personal independence in daily activities [Unknown]
  - Asthenia [Unknown]
  - Neurotransmitter level altered [Unknown]
  - Mania [Unknown]
  - Heart valve calcification [Unknown]
  - Product dispensing error [Unknown]
  - Nerve injury [Unknown]
  - Insomnia [Unknown]
  - Non-24-hour sleep-wake disorder [Unknown]
  - Hypersomnia [Unknown]
  - Withdrawal syndrome [Unknown]
  - Gastric disorder [Unknown]
  - Fatigue [Unknown]
  - Post-traumatic stress disorder [Unknown]
  - Product label on wrong product [Unknown]

NARRATIVE: CASE EVENT DATE: 2016
